FAERS Safety Report 7087910-4 (Version None)
Quarter: 2010Q4

REPORT INFORMATION
  Report Type: 
  Country: None (occurrence: None)
  Receive Date: 20101108
  Receipt Date: 20101027
  Transmission Date: 20110411
  Serious: Yes (Other)
  Sender: FDA-Public Use
  Company Number: US-US-EMD SERONO, INC.-7016371

PATIENT
  Sex: Female
  Weight: 71 kg

DRUGS (1)
  1. REBIF [Suspect]
     Indication: MULTIPLE SCLEROSIS
     Route: 058
     Dates: start: 20100211

REACTIONS (12)
  - BLOOD GLUCOSE INCREASED [None]
  - DELIRIUM [None]
  - DYSPHONIA [None]
  - ECZEMA [None]
  - FALL [None]
  - INJECTION SITE HAEMATOMA [None]
  - MICTURITION URGENCY [None]
  - MOBILITY DECREASED [None]
  - MUSCULAR WEAKNESS [None]
  - PAIN [None]
  - THERMAL BURN [None]
  - URINARY INCONTINENCE [None]
